FAERS Safety Report 9001949 (Version 1)
Quarter: 2013Q1

REPORT INFORMATION
  Report Type: Spontaneous
  Country: GB (occurrence: GB)
  Receive Date: 20130108
  Receipt Date: 20130108
  Transmission Date: 20140127
  Serious: Yes (Other)
  Sender: FDA-Public Use
  Company Number: GB-009507513-1301GBR000599

PATIENT
  Age: 59 Year
  Sex: Male
  Weight: 93.2 kg

DRUGS (4)
  1. SIMVASTATIN [Suspect]
     Dosage: UNK
     Route: 048
     Dates: start: 20121121
  2. BECLOMETHASONE DIPROPIONATE [Concomitant]
     Dosage: UNK
     Dates: start: 20121023
  3. BENDROFLUMETHIAZIDE [Concomitant]
     Dosage: UNK
     Dates: start: 20121121, end: 20121219
  4. ALBUTEROL [Concomitant]
     Dosage: UNK
     Dates: start: 20120509

REACTIONS (2)
  - Psychomotor hyperactivity [Recovered/Resolved]
  - Myalgia [Recovered/Resolved]
